FAERS Safety Report 18607771 (Version 1)
Quarter: 2020Q4

REPORT INFORMATION
  Report Type: Spontaneous
  Country: CA (occurrence: CA)
  Receive Date: 20201211
  Receipt Date: 20201211
  Transmission Date: 20210114
  Serious: Yes (Hospitalization)
  Sender: FDA-Public Use
  Company Number: CA-ELI_LILLY_AND_COMPANY-CA202012005529

PATIENT
  Age: 45 Year

DRUGS (1)
  1. STRATTERA [Suspect]
     Active Substance: ATOMOXETINE HYDROCHLORIDE
     Indication: PRODUCT USED FOR UNKNOWN INDICATION
     Dosage: 80 MG, UNKNOWN
     Route: 065

REACTIONS (6)
  - Atrial fibrillation [Unknown]
  - Cardiac failure [Unknown]
  - Ejection fraction decreased [Unknown]
  - Endocarditis [Unknown]
  - Myocarditis [Unknown]
  - Acute myocardial infarction [Unknown]
